FAERS Safety Report 5608801-9 (Version None)
Quarter: 2008Q1

REPORT INFORMATION
  Report Type: 
  Country: None (occurrence: None)
  Receive Date: 20080129
  Receipt Date: 20080129
  Transmission Date: 20080703
  Serious: Yes (Hospitalization)
  Sender: FDA-Public Use
  Company Number: None

PATIENT
  Age: 55 Year
  Sex: Male
  Weight: 78.0187 kg

DRUGS (5)
  1. EFFEXOR XR [Suspect]
     Indication: HOT FLUSH
     Dosage: 75MG MG PO Q DAY
     Route: 048
     Dates: start: 20071202
  2. SOY PROTEIN 20MG VS CASEIN PROTEIN BIOLOGICS [Suspect]
     Indication: HOT FLUSH
     Dosage: 1 PACKET PO Q DAY
     Route: 048
     Dates: start: 20071202
  3. ASPIRIN [Concomitant]
  4. LORTAB [Concomitant]
  5. ZOMETA [Concomitant]

REACTIONS (5)
  - INFECTION [None]
  - LOCALISED OEDEMA [None]
  - OEDEMA GENITAL [None]
  - PAIN [None]
  - PERIRECTAL ABSCESS [None]
